FAERS Safety Report 13101353 (Version 2)
Quarter: 2017Q1

REPORT INFORMATION
  Report Type: Spontaneous
  Country: US (occurrence: US)
  Receive Date: 20170110
  Receipt Date: 20170131
  Transmission Date: 20170428
  Serious: No
  Sender: FDA-Public Use
  Company Number: US-GLAXOSMITHKLINE-US2017001639

PATIENT
  Sex: Female

DRUGS (1)
  1. VENTOLIN HFA [Suspect]
     Active Substance: ALBUTEROL SULFATE
     Indication: PRODUCT USED FOR UNKNOWN INDICATION
     Route: 055

REACTIONS (9)
  - Throat irritation [Unknown]
  - Wrong technique in product usage process [Unknown]
  - Palpitations [Unknown]
  - Product quality issue [Unknown]
  - Device leakage [Unknown]
  - Device use error [Unknown]
  - Drug dose omission [Unknown]
  - Heart rate increased [Unknown]
  - Wheezing [Unknown]
